FAERS Safety Report 24162028 (Version 1)
Quarter: 2024Q3

REPORT INFORMATION
  Report Type: Spontaneous
  Country: US (occurrence: US)
  Receive Date: 20240801
  Receipt Date: 20240801
  Transmission Date: 20241016
  Serious: No
  Sender: GLENMARK
  Company Number: US-GLENMARK PHARMACEUTICALS-2024GMK089617

PATIENT

DRUGS (2)
  1. MUPIROCIN [Suspect]
     Active Substance: MUPIROCIN
     Indication: Limb injury
     Dosage: UNK
     Route: 065
  2. MUPIROCIN [Suspect]
     Active Substance: MUPIROCIN
     Indication: Pain in extremity

REACTIONS (5)
  - Expired product administered [Unknown]
  - Drug effective for unapproved indication [Unknown]
  - Product storage error [Unknown]
  - Prescription drug used without a prescription [Unknown]
  - Wrong technique in product usage process [Unknown]
